FAERS Safety Report 11226371 (Version 2)
Quarter: 2015Q3

REPORT INFORMATION
  Report Type: Report from Study
  Country: US (occurrence: US)
  Receive Date: 20150629
  Receipt Date: 20150724
  Transmission Date: 20151125
  Serious: Yes (Hospitalization, Other)
  Sender: FDA-Public Use
  Company Number: US-GILEAD-2015-0160510

PATIENT
  Age: 70 Year
  Sex: Male

DRUGS (1)
  1. RANOLAZINE [Suspect]
     Active Substance: RANOLAZINE
     Indication: ANGINA PECTORIS
     Dosage: 500 MG, UNK
     Route: 048

REACTIONS (13)
  - Malaise [Unknown]
  - Arterial occlusive disease [Unknown]
  - Gait disturbance [Unknown]
  - Insomnia [Unknown]
  - Cardiac disorder [Unknown]
  - Arteriosclerosis [Unknown]
  - Hypertension [Unknown]
  - Depression [Unknown]
  - Early retirement [Unknown]
  - Coronary artery bypass [Unknown]
  - Sleep apnoea syndrome [Unknown]
  - Asthenia [Unknown]
  - Muscular weakness [Unknown]

NARRATIVE: CASE EVENT DATE: 200009
